FAERS Safety Report 8538544-3 (Version None)
Quarter: 2012Q3

REPORT INFORMATION
  Report Type: 
  Country: None (occurrence: None)
  Receive Date: 20120718
  Receipt Date: 20120718
  Transmission Date: 20120928
  Serious: Yes (Other)
  Sender: FDA-Public Use
  Company Number: None

PATIENT
  Sex: Female
  Weight: 58.9676 kg

DRUGS (1)
  1. NITROFURANTOIN [Suspect]
     Indication: CYSTITIS
     Dosage: 100 MG CAP (1 EVERY 12 HRS FOR 5 DAYS)
     Dates: start: 20120509, end: 20120513

REACTIONS (12)
  - VOMITING [None]
  - HEADACHE [None]
  - MYALGIA [None]
  - DIZZINESS [None]
  - JUDGEMENT IMPAIRED [None]
  - NAUSEA [None]
  - FATIGUE [None]
  - MALAISE [None]
  - RASH [None]
  - MUCOUS STOOLS [None]
  - DIARRHOEA [None]
  - COUGH [None]
